FAERS Safety Report 22000124 (Version 1)
Quarter: 2023Q1

REPORT INFORMATION
  Report Type: Spontaneous
  Country: US (occurrence: US)
  Receive Date: 20230216
  Receipt Date: 20230216
  Transmission Date: 20230417
  Serious: Yes (Hospitalization)
  Sender: FDA-Public Use
  Company Number: US-PFIZER INC-202300018251

PATIENT
  Age: 78 Year
  Sex: Male
  Weight: 81.633 kg

DRUGS (5)
  1. VYNDAMAX [Suspect]
     Active Substance: TAFAMIDIS
     Indication: Amyloidosis
     Dosage: 61 MG, DAILY
     Dates: start: 20220601
  2. LISINOPRIL [Concomitant]
     Active Substance: LISINOPRIL
     Dosage: 5 MG, DAILY
  3. METOPROLOL TARTRATE [Concomitant]
     Active Substance: METOPROLOL TARTRATE
     Dosage: 25 MG
  4. PAXLOVID [Concomitant]
     Active Substance: NIRMATRELVIR\RITONAVIR
     Indication: COVID-19 treatment
     Dosage: UNK
  5. ASPIRIN [Concomitant]
     Active Substance: ASPIRIN
     Dosage: 81 MG

REACTIONS (3)
  - Cerebrovascular accident [Not Recovered/Not Resolved]
  - Ventricular tachycardia [Unknown]
  - Supraventricular tachycardia [Unknown]

NARRATIVE: CASE EVENT DATE: 20221223
